FAERS Safety Report 6150277-X (Version None)
Quarter: 2009Q2

REPORT INFORMATION
  Report Type: 
  Country: None (occurrence: None)
  Receive Date: 20090407
  Receipt Date: 20090326
  Transmission Date: 20091009
  Serious: Yes (Hospitalization)
  Sender: FDA-Public Use
  Company Number: WAES 0903TWN00012

PATIENT
  Age: 67 Year
  Sex: Female

DRUGS (7)
  1. FOSAMAX PLUS D [Suspect]
     Indication: OSTEOPOROSIS
     Dosage: 700 MG/ 2800 IU/WKY PO
     Route: 048
     Dates: start: 20080513, end: 20081005
  2. ASPIRIN [Concomitant]
  3. CELECOXIB [Concomitant]
  4. CHLORZOXAZONE [Concomitant]
  5. CLONAZEPAM [Concomitant]
  6. LACIDIPINE [Concomitant]
  7. ZOLPIDEM TARTRATE [Concomitant]

REACTIONS (1)
  - HAEMORRHAGIC STROKE [None]
